FAERS Safety Report 9792577 (Version 2)
Quarter: 2014Q2

REPORT INFORMATION
  Report Type: Spontaneous
  Country: US (occurrence: US)
  Receive Date: 20140102
  Receipt Date: 20140402
  Transmission Date: 20141212
  Serious: No
  Sender: FDA-Public Use
  Company Number: US-SA-2013SA098143

PATIENT
  Age: 46 Year
  Sex: Female

DRUGS (5)
  1. AUBAGIO [Suspect]
     Indication: MULTIPLE SCLEROSIS
     Dosage: TAKEN FROM: APRIL.
     Route: 048
     Dates: start: 201304
  2. PRILOSEC [Concomitant]
  3. BUSPIRONE [Concomitant]
  4. LORAZEPAM [Concomitant]
  5. SERTRALINE [Concomitant]
     Dosage: 50 MG

REACTIONS (1)
  - Alopecia [Recovered/Resolved]
